FAERS Safety Report 6716911-8 (Version None)
Quarter: 2010Q2

REPORT INFORMATION
  Report Type: 
  Country: None (occurrence: None)
  Receive Date: 20100506
  Receipt Date: 20100506
  Transmission Date: 20101027
  Serious: Yes (Death, Disabling, Other)
  Sender: FDA-Public Use
  Company Number: None

PATIENT
  Age: 69 Year
  Sex: Male
  Weight: 79.3795 kg

DRUGS (1)
  1. BUMETANIDE [Suspect]

REACTIONS (3)
  - COLITIS [None]
  - GASTROINTESTINAL DISORDER [None]
  - PROCTALGIA [None]
